FAERS Safety Report 17452547 (Version 1)
Quarter: 2020Q1

REPORT INFORMATION
  Report Type: Spontaneous
  Country: CN (occurrence: CN)
  Receive Date: 20200224
  Receipt Date: 20200224
  Transmission Date: 20200409
  Serious: Yes (Life-Threatening)
  Sender: FDA-Public Use
  Company Number: CN-BAXTER-2020BAX003900

PATIENT
  Age: 45 Year
  Sex: Female
  Weight: 51.9 kg

DRUGS (6)
  1. ENDOXAN [Suspect]
     Active Substance: CYCLOPHOSPHAMIDE
     Indication: BREAST CANCER FEMALE
     Dosage: TC REGIMEN: FIRST CHEMOTHERAPY
     Route: 041
  2. CHEN HUAN (DOCETAXEL) [Suspect]
     Active Substance: DOCETAXEL
     Indication: BREAST CANCER FEMALE
     Dosage: TC REGIMEN: FIRST CHEMOTHERAPY
     Route: 041
  3. CHEN HUAN (DOCETAXEL) [Suspect]
     Active Substance: DOCETAXEL
     Dosage: SECOND CHEMOTHERAPY; TC REGIMEN
     Route: 041
     Dates: start: 20191227, end: 20200107
  4. CHEN HUAN (DOCETAXEL) [Suspect]
     Active Substance: DOCETAXEL
     Dosage: DOSE RE-INTRODUCED
     Route: 041
  5. ENDOXAN [Suspect]
     Active Substance: CYCLOPHOSPHAMIDE
     Dosage: TC REGIMEN; SECOND CHEMOTHERAPY
     Route: 041
     Dates: start: 20191227, end: 20200107
  6. ENDOXAN [Suspect]
     Active Substance: CYCLOPHOSPHAMIDE
     Dosage: DOSE RE-INTRODUCED
     Route: 041

REACTIONS (2)
  - Anaphylactoid reaction [Recovering/Resolving]
  - Laryngeal oedema [Recovering/Resolving]

NARRATIVE: CASE EVENT DATE: 20200106
